FAERS Safety Report 6507226-1 (Version None)
Quarter: 2009Q4

REPORT INFORMATION
  Report Type: 
  Country: None (occurrence: None)
  Receive Date: 20091221
  Receipt Date: 20091214
  Transmission Date: 20100525
  Serious: Yes (Other)
  Sender: FDA-Public Use
  Company Number: PHHY2009BR55881

PATIENT
  Age: 44 Year
  Sex: Female
  Weight: 60 kg

DRUGS (8)
  1. LEPONEX [Suspect]
     Indication: SCHIZOPHRENIA, PARANOID TYPE
     Dosage: 12.5 MG
     Dates: start: 20091130
  2. LEPONEX [Suspect]
     Dosage: 25 MG
  3. LEPONEX [Suspect]
     Dosage: 50 MG
  4. LEPONEX [Suspect]
     Dosage: 75 MG
  5. LEPONEX [Suspect]
     Dosage: 150 MG
     Dates: start: 20091215
  6. LEPONEX [Suspect]
     Dosage: 175MH UNK
  7. CLONAZEPAM [Concomitant]
     Indication: SCHIZOPHRENIA, PARANOID TYPE
     Dosage: BETWEEN 1 TO 3 TABLETS DAILY
     Route: 048
     Dates: start: 20050101
  8. NEOZINE [Concomitant]
     Indication: SCHIZOPHRENIA, PARANOID TYPE
     Dosage: 1 TABLET DAILY
     Dates: start: 20050101

REACTIONS (8)
  - AGITATION [None]
  - CONSTIPATION [None]
  - DIZZINESS [None]
  - FEAR OF FALLING [None]
  - NAUSEA [None]
  - SALIVARY HYPERSECRETION [None]
  - SOMNOLENCE [None]
  - TREMOR [None]
